FAERS Safety Report 8571577-X (Version None)
Quarter: 2012Q3

REPORT INFORMATION
  Report Type: 
  Country: None (occurrence: None)
  Receive Date: 20120806
  Receipt Date: 20120801
  Transmission Date: 20120928
  Serious: Yes (Other)
  Sender: FDA-Public Use
  Company Number: PHHY2012FR066685

PATIENT
  Sex: Male

DRUGS (5)
  1. REQUIP [Suspect]
     Dosage: 12 MG DAILY
  2. REQUIP [Suspect]
     Dosage: 14  MG DAILY
     Dates: start: 20120220
  3. MODOPAR [Suspect]
     Indication: PARKINSON'S DISEASE
     Dosage: 62.5 MG, SIX TIMES DAILY
     Dates: start: 20060101
  4. STALEVO 100 [Suspect]
     Indication: PARKINSON'S DISEASE
     Dosage: 150 MG SIX TIMES DAILY
     Route: 048
     Dates: start: 20060101
  5. REQUIP [Suspect]
     Indication: PARKINSON'S DISEASE
     Dosage: 16 MG DAILY

REACTIONS (3)
  - STEREOTYPY [None]
  - PATHOLOGICAL GAMBLING [None]
  - DOPAMINE DYSREGULATION SYNDROME [None]
